FAERS Safety Report 22080158 (Version 1)
Quarter: 2023Q1

REPORT INFORMATION
  Report Type: Spontaneous
  Country: SE (occurrence: SE)
  Receive Date: 20230309
  Receipt Date: 20230309
  Transmission Date: 20230418
  Serious: Yes (Other)
  Sender: FDA-Public Use
  Company Number: None

PATIENT
  Age: 24 Year
  Sex: Female

DRUGS (11)
  1. VENLAFAXINE [Suspect]
     Active Substance: VENLAFAXINE HYDROCHLORIDE
     Indication: Depression
     Dosage: UP TO 112.5 MG
     Route: 065
     Dates: start: 20221201, end: 20221215
  2. EBASTINE [Concomitant]
     Active Substance: EBASTINE
     Indication: Product used for unknown indication
     Dosage: 1 TABLET IF NEEDED, MAXIMUM 2 TABLETS PER DAY
     Route: 065
     Dates: start: 20220604
  3. LOCOID [Concomitant]
     Active Substance: HYDROCORTISONE BUTYRATE
     Indication: Product used for unknown indication
     Dosage: ACCORDING TO SPECIAL PRESCRIPTION MORNING AND EVENING FOR TWO WEEKS. EVERY EVENING FOR TWO WEEKS AND
     Route: 065
     Dates: start: 20221102
  4. MIRENA [Concomitant]
     Active Substance: LEVONORGESTREL
     Indication: Product used for unknown indication
     Dosage: 20 MICROGRAM DAILY; 20 MICROGRAMS/24 HOURS
     Route: 065
     Dates: start: 20220801
  5. MOMETASONE [Concomitant]
     Active Substance: MOMETASONE
     Indication: Product used for unknown indication
     Dosage: 1-2 DOSES ONCE DAILY IN EACH NOSTRIL, FORM STRENGTH : 50 MICROGRAMS/DOSE
     Route: 065
     Dates: start: 20211008
  6. SUMATRIPTAN AUROBINDO [Concomitant]
     Indication: Product used for unknown indication
     Dosage: 1 TABLET IF NEEDED, MAXIMUM 2 TABLETS PER DAY
     Route: 065
     Dates: start: 20200911
  7. NAPROXEN [Concomitant]
     Active Substance: NAPROXEN
     Indication: Product used for unknown indication
     Dosage: 3 TABLETS AS NEEDED
     Route: 065
     Dates: start: 20200911
  8. ACETAMINOPHEN [Concomitant]
     Active Substance: ACETAMINOPHEN
     Indication: Product used for unknown indication
     Dosage: 1-2 TABLETS 4 TIMES DAILY
     Route: 065
     Dates: start: 20190313
  9. ATARAX [Concomitant]
     Active Substance: HYDROXYZINE HYDROCHLORIDE
     Indication: Product used for unknown indication
     Route: 065
     Dates: start: 20220905
  10. PROMETHAZINE HYDROCHLORIDE\THIOUREA [Concomitant]
     Active Substance: PROMETHAZINE HYDROCHLORIDE\THIOUREA
     Indication: Product used for unknown indication
     Dosage: 1 TABLET IF NEEDED, MAXIMUM 3 TABLETS PER DAY
     Route: 065
     Dates: start: 20221109
  11. GESTRINA [Concomitant]
     Indication: Product used for unknown indication
     Route: 065
     Dates: start: 20190408

REACTIONS (3)
  - Paraesthesia oral [Unknown]
  - Oral mucosal blistering [Recovered/Resolved]
  - Mouth swelling [Recovered/Resolved]

NARRATIVE: CASE EVENT DATE: 20220101
